FAERS Safety Report 4420123-0 (Version None)
Quarter: 2004Q3

REPORT INFORMATION
  Report Type: 
  Country: None (occurrence: None)
  Receive Date: 20040809
  Receipt Date: 20040323
  Transmission Date: 20050211
  Serious: No
  Sender: FDA-Public Use
  Company Number: US-GLAXOSMITHKLINE-A0504076A

PATIENT
  Sex: Male

DRUGS (3)
  1. PAROXETINE HCL [Suspect]
     Indication: DEPRESSION
     Dosage: 40MG PER DAY
     Route: 048
  2. ATIVAN [Concomitant]
  3. PAROXETINE HYDROCHLORIDE [Concomitant]

REACTIONS (1)
  - ANXIETY [None]
